FAERS Safety Report 26207222 (Version 1)
Quarter: 2025Q4

REPORT INFORMATION
  Report Type: Report from Study
  Country: US (occurrence: US)
  Receive Date: 20251229
  Receipt Date: 20251229
  Transmission Date: 20260117
  Serious: Yes (Hospitalization)
  Sender: GILEAD
  Company Number: US-GILEAD-2025-0742362

PATIENT
  Age: 13 Year
  Sex: Female

DRUGS (4)
  1. AZTREONAM LYSINE [Suspect]
     Active Substance: AZTREONAM LYSINE
     Indication: Chronic obstructive pulmonary disease
     Dosage: 75 MG, TID
     Route: 055
     Dates: start: 202504
  2. AZTREONAM LYSINE [Suspect]
     Active Substance: AZTREONAM LYSINE
     Indication: Bronchiectasis
  3. AZTREONAM LYSINE [Suspect]
     Active Substance: AZTREONAM LYSINE
     Indication: Pneumonia
  4. KITABIS PAK [Concomitant]
     Active Substance: TOBRAMYCIN
     Indication: Pneumonia
     Dosage: 300MG, INHALE, 2 TIMES A DAY
     Dates: start: 202303

REACTIONS (2)
  - Ill-defined disorder [Unknown]
  - Product use in unapproved indication [Not Recovered/Not Resolved]
